FAERS Safety Report 7650689-9 (Version None)
Quarter: 2011Q3

REPORT INFORMATION
  Report Type: 
  Country: None (occurrence: None)
  Receive Date: 20110802
  Receipt Date: 20110801
  Transmission Date: 20111222
  Serious: Yes (Death, Hospitalization)
  Sender: FDA-Public Use
  Company Number: GR-CUBIST-2011S1000496

PATIENT
  Age: 85 Year
  Sex: Female
  Weight: 87 kg

DRUGS (3)
  1. TINZAPARIN [Concomitant]
     Indication: PRODUCT USED FOR UNKNOWN INDICATION
     Dosage: DOSE UNIT:U UNKNOWN
     Route: 065
     Dates: start: 20110508
  2. CUBICIN [Suspect]
     Indication: PERIPHERAL ISCHAEMIA
     Route: 042
     Dates: start: 20110506, end: 20110514
  3. CUBICIN [Suspect]
     Route: 042
     Dates: start: 20110506, end: 20110514

REACTIONS (3)
  - CARDIAC FAILURE [None]
  - PERIPHERAL ISCHAEMIA [None]
  - RESPIRATORY FAILURE [None]
